FAERS Safety Report 6595896-1 (Version None)
Quarter: 2010Q1

REPORT INFORMATION
  Report Type: 
  Country: None (occurrence: None)
  Receive Date: 20100219
  Receipt Date: 20100219
  Transmission Date: 20100710
  Serious: Yes (Other)
  Sender: FDA-Public Use
  Company Number: None

PATIENT
  Age: 22 Year
  Sex: Female
  Weight: 68.0396 kg

DRUGS (1)
  1. LEVOFLOXACIN [Suspect]
     Indication: PYELONEPHRITIS
     Dosage: 500MG IV DAILY
     Route: 042

REACTIONS (2)
  - PRURITUS [None]
  - RASH MACULAR [None]
